FAERS Safety Report 19475812 (Version 2)
Quarter: 2021Q3

REPORT INFORMATION
  Report Type: Spontaneous
  Country: PL (occurrence: PL)
  Receive Date: 20210630
  Receipt Date: 20210728
  Transmission Date: 20211014
  Serious: No
  Sender: FDA-Public Use
  Company Number: PL-TOPROL-2021000131

PATIENT
  Age: 81 Year
  Sex: Male
  Weight: 90 kg

DRUGS (7)
  1. TRITACE [Concomitant]
     Active Substance: RAMIPRIL
     Dosage: 2X1/2
     Route: 048
  2. BETALOC ZOK [Suspect]
     Active Substance: METOPROLOL SUCCINATE
     Dosage: 1 DOSAGE FORM, QD
     Route: 048
     Dates: start: 20210515, end: 20210520
  3. DIAPREL [Concomitant]
     Active Substance: GLICLAZIDE
     Dosage: 1X1
     Route: 048
  4. GLUCOPHAGE [Concomitant]
     Active Substance: METFORMIN HYDROCHLORIDE
     Dosage: 1X1
     Route: 048
  5. SIMVACARD [Concomitant]
     Active Substance: SIMVASTATIN
     Dosage: 1X1
     Route: 048
  6. POLOCARD [Concomitant]
     Active Substance: ASPIRIN
     Dosage: 1X1
     Route: 048
  7. HYGROTON [Concomitant]
     Active Substance: CHLORTHALIDONE
     Dosage: 1X1/2
     Route: 048

REACTIONS (2)
  - Blood pressure increased [Recovered/Resolved]
  - Drug ineffective [Recovered/Resolved]
